FAERS Safety Report 21238418 (Version 5)
Quarter: 2023Q2

REPORT INFORMATION
  Report Type: Report from Study
  Country: CN (occurrence: CN)
  Receive Date: 20220822
  Receipt Date: 20230412
  Transmission Date: 20230721
  Serious: Yes (Death, Other)
  Sender: FDA-Public Use
  Company Number: CN-TAKEDA-2022TUS057756

PATIENT
  Age: 74 Year
  Sex: Male
  Weight: 63 kg

DRUGS (11)
  1. IXAZOMIB [Suspect]
     Active Substance: IXAZOMIB
     Indication: Plasma cell myeloma
     Dosage: 4 MILLIGRAM, 1/WEEK
     Route: 048
     Dates: start: 20220317
  2. DEXAMETHASONE [Suspect]
     Active Substance: DEXAMETHASONE
     Indication: Plasma cell myeloma
     Dosage: 10 MILLIGRAM
     Route: 042
     Dates: start: 20220317
  3. POMALIDOMIDE [Suspect]
     Active Substance: POMALIDOMIDE
     Indication: Plasma cell myeloma
     Dosage: 4 MILLIGRAM, QD
     Route: 048
     Dates: start: 20220317
  4. METHYLCOBALAMIN [Concomitant]
     Active Substance: METHYLCOBALAMIN
     Indication: Prophylaxis
     Dosage: UNK
     Route: 065
     Dates: start: 20220422, end: 20220525
  5. ASPIRIN [Concomitant]
     Active Substance: ASPIRIN
     Indication: Anticoagulant therapy
     Dosage: 10 MILLIGRAM, QD
     Route: 048
     Dates: start: 20220422, end: 20220525
  6. CIMETIDINE [Concomitant]
     Active Substance: CIMETIDINE
     Indication: Prophylaxis
     Dosage: 0.40 GRAM, QD
     Route: 042
     Dates: start: 20220420, end: 20220525
  7. VITAMIN B6 [Concomitant]
     Active Substance: PYRIDOXINE HYDROCHLORIDE
     Indication: Prophylaxis
     Dosage: 0.20 GRAM, QD
     Route: 042
     Dates: start: 20220420, end: 20220525
  8. Sodium acetate ringer [Concomitant]
     Indication: Fluid replacement
     Dosage: 250 MILLILITER, QD
     Route: 042
     Dates: start: 20220420, end: 20220514
  9. Shen mai [Concomitant]
     Indication: Prophylaxis
     Dosage: 50 MILLIGRAM, QD
     Route: 042
     Dates: start: 20220422, end: 20220422
  10. PIPERACILLIN AND TAZOBACTAM [Concomitant]
     Active Substance: PIPERACILLIN SODIUM\TAZOBACTAM SODIUM
     Indication: Prophylaxis
     Dosage: 4.5 GRAM
     Route: 042
     Dates: start: 20220510, end: 20220525
  11. DEXAMETHASONE SODIUM PHOSPHATE [Concomitant]
     Active Substance: DEXAMETHASONE SODIUM PHOSPHATE
     Indication: Allergy prophylaxis
     Dosage: 10 MILLIGRAM
     Route: 065
     Dates: start: 20220422, end: 20220427

REACTIONS (2)
  - Death [Fatal]
  - Asthenia [Not Recovered/Not Resolved]

NARRATIVE: CASE EVENT DATE: 20220428
